FAERS Safety Report 7831054-8 (Version None)
Quarter: 2011Q4

REPORT INFORMATION
  Report Type: 
  Country: None (occurrence: None)
  Receive Date: 20111021
  Receipt Date: 20111015
  Transmission Date: 20120403
  Serious: Yes (Hospitalization)
  Sender: FDA-Public Use
  Company Number: PHHY2011MX91973

PATIENT
  Sex: Female

DRUGS (2)
  1. COBAMAMIDE [Concomitant]
     Indication: INFLAMMATION
     Dates: start: 20061001
  2. ZOLEDRONOC ACID [Suspect]
     Indication: OSTEOPOROSIS
     Dosage: 5 MG/100 ML, ONCE A YEAR
     Route: 042
     Dates: start: 20110501

REACTIONS (3)
  - NECK PAIN [None]
  - INSOMNIA [None]
  - NECK MASS [None]
